FAERS Safety Report 17598771 (Version 1)
Quarter: 2020Q1

REPORT INFORMATION
  Report Type: Spontaneous
  Country: US (occurrence: US)
  Receive Date: 20200329
  Receipt Date: 20200329
  Transmission Date: 20200409
  Serious: Yes (Hospitalization)
  Sender: FDA-Public Use
  Company Number: None

PATIENT
  Age: 72 Year
  Sex: Male

DRUGS (7)
  1. ANTI-VIRAL MEDICATION [Concomitant]
     Active Substance: UNSPECIFIED INGREDIENT
  2. MULTIVITAMIN [Concomitant]
     Active Substance: VITAMINS
  3. MED FOR HYPERTENSION [Concomitant]
  4. ANTIBODY [Concomitant]
     Active Substance: UNSPECIFIED INGREDIENT
  5. RITUXIMAB. [Concomitant]
     Active Substance: RITUXIMAB
  6. IBUPROFEN. [Concomitant]
     Active Substance: IBUPROFEN
  7. RITUXIMAB. [Suspect]
     Active Substance: RITUXIMAB
     Indication: B-CELL LYMPHOMA
     Route: 042

REACTIONS (3)
  - Hypertension [None]
  - Myocardial infarction [None]
  - Migraine [None]

NARRATIVE: CASE EVENT DATE: 20200318
